FAERS Safety Report 15396584 (Version 1)
Quarter: 2018Q3

REPORT INFORMATION
  Report Type: Other
  Country: US (occurrence: US)
  Receive Date: 20180918
  Receipt Date: 20180918
  Transmission Date: 20181010
  Serious: No
  Sender: FDA-Public Use
  Company Number: US-LEADIANT BIOSCIENCES INC-2018STPI000196

PATIENT
  Sex: Male

DRUGS (12)
  1. KEPPRA [Concomitant]
     Active Substance: LEVETIRACETAM
     Dosage: 750 MG, UNK
     Dates: start: 20170919
  2. MATULANE [Suspect]
     Active Substance: PROCARBAZINE HYDROCHLORIDE
     Indication: NEOPLASM MALIGNANT
     Dosage: 50 MG, 2 CAPSULES DAILY ON DAYS 8 TO 21 EVERY 6 WEEK CYCLE
     Route: 048
     Dates: start: 20170920
  3. METFORMIN [Concomitant]
     Active Substance: METFORMIN HYDROCHLORIDE
     Dosage: 150 MG IN AM AND 100 MG IN PM
     Dates: start: 20170919
  4. OMEPRAZOLE. [Concomitant]
     Active Substance: OMEPRAZOLE
     Dosage: 20 MG, UNK
     Dates: start: 20170919
  5. PROCHLORPERAZINE. [Concomitant]
     Active Substance: PROCHLORPERAZINE
     Dosage: 5 MG, UNK
     Dates: start: 20170920
  6. AMOXICILLIN. [Concomitant]
     Active Substance: AMOXICILLIN
  7. ONDANSETRON [Concomitant]
     Active Substance: ONDANSETRON
     Dosage: 8 MG, UNK
     Dates: start: 20170920, end: 20171207
  8. PRAVASTATIN. [Concomitant]
     Active Substance: PRAVASTATIN
     Dosage: 20 MG, UNK
     Dates: start: 20170919
  9. MULTIVITAMIN                       /00097801/ [Concomitant]
     Active Substance: VITAMINS
     Dosage: UNK
     Dates: start: 20170919
  10. MELATONIN [Concomitant]
     Active Substance: MELATONIN
     Dosage: 3 MG, UNK
     Dates: start: 20170919
  11. LISINOPRIL. [Concomitant]
     Active Substance: LISINOPRIL
     Dosage: 25 MG,
     Dates: start: 20170919
  12. ONE TOUCH [Concomitant]
     Dosage: UNK
     Dates: start: 20171205

REACTIONS (2)
  - Fatigue [Unknown]
  - Decreased appetite [Not Recovered/Not Resolved]
